FAERS Safety Report 23029775 (Version 2)
Quarter: 2023Q4

REPORT INFORMATION
  Report Type: Spontaneous
  Country: US (occurrence: US)
  Receive Date: 20231004
  Receipt Date: 20231117
  Transmission Date: 20240110
  Serious: Yes (Other)
  Sender: FDA-Public Use
  Company Number: US-JNJFOC-20230958734

PATIENT
  Age: 84 Year
  Sex: Male
  Weight: 104 kg

DRUGS (11)
  1. TECVAYLI [Suspect]
     Active Substance: TECLISTAMAB-CQYV
     Indication: Plasma cell myeloma
     Dosage: STEP-UP INITIATED 7/31/23 AND IS CONTINUING ON THERAPY
     Route: 058
     Dates: start: 20230731
  2. TECVAYLI [Suspect]
     Active Substance: TECLISTAMAB-CQYV
     Dosage: LAST DOSE WAS ON 21-AUG-2023
     Route: 058
     Dates: end: 20230828
  3. TECVAYLI [Suspect]
     Active Substance: TECLISTAMAB-CQYV
     Route: 058
     Dates: start: 20230925
  4. TECVAYLI [Suspect]
     Active Substance: TECLISTAMAB-CQYV
     Route: 058
     Dates: start: 2023
  5. ATORVASTATIN [Concomitant]
     Active Substance: ATORVASTATIN
     Indication: Hyperlipidaemia
     Route: 048
     Dates: start: 2017
  6. BRIMONIDINE [Concomitant]
     Active Substance: BRIMONIDINE TARTRATE
     Indication: Cytomegalovirus chorioretinitis
     Dosage: 1 DROP RIGHT EYE TWICE DAILY
     Route: 047
     Dates: start: 20230615
  7. DORZOLAMIDE HYDROCHLORIDE [Concomitant]
     Active Substance: DORZOLAMIDE HYDROCHLORIDE
     Indication: Cytomegalovirus chorioretinitis
     Dosage: 1 DROP RIGHT EYE TWICE DAILY
     Route: 047
     Dates: start: 20230615
  8. DIFLUPREDNATE [Concomitant]
     Active Substance: DIFLUPREDNATE
     Indication: Uveitis
     Dosage: 1 DROP RIGHT EYE TWICE DAILY
     Route: 047
     Dates: start: 20230124
  9. DIFLUPREDNATE [Concomitant]
     Active Substance: DIFLUPREDNATE
     Indication: Cataract
  10. DULOXETINE [Concomitant]
     Active Substance: DULOXETINE
     Indication: Neuropathy peripheral
     Dosage: NIGHTLY
     Route: 048
     Dates: start: 2019
  11. LISINOPRIL [Concomitant]
     Active Substance: LISINOPRIL
     Indication: Hypertension
     Route: 048
     Dates: start: 20220420

REACTIONS (1)
  - Thrombocytopenia [Recovered/Resolved]

NARRATIVE: CASE EVENT DATE: 20230814
